FAERS Safety Report 18817174 (Version 1)
Quarter: 2021Q1

REPORT INFORMATION
  Report Type: Spontaneous
  Country: IT (occurrence: IT)
  Receive Date: 20210201
  Receipt Date: 20210201
  Transmission Date: 20210419
  Serious: Yes (Other)
  Sender: FDA-Public Use
  Company Number: IT-JUBILANT CADISTA PHARMACEUTICALS-2021JUB00021

PATIENT
  Sex: Male
  Weight: 80 kg

DRUGS (2)
  1. PREDNISONE. [Suspect]
     Active Substance: PREDNISONE
     Dosage: 5 MG, 1X/DAY
     Route: 048
     Dates: start: 201605
  2. PREDNISONE. [Suspect]
     Active Substance: PREDNISONE
     Indication: MYASTHENIA GRAVIS
     Dosage: 50 MG, 1X/DAY
     Route: 048
     Dates: start: 201509, end: 201605

REACTIONS (2)
  - Kaposi^s sarcoma [Recovering/Resolving]
  - Diabetes mellitus [Unknown]
